FAERS Safety Report 7819112-5 (Version None)
Quarter: 2011Q4

REPORT INFORMATION
  Report Type: 
  Country: None (occurrence: None)
  Receive Date: 20111018
  Receipt Date: 20111007
  Transmission Date: 20120403
  Serious: Yes (Hospitalization)
  Sender: FDA-Public Use
  Company Number: JP-GENZYME-FABR-1002176

PATIENT
  Sex: Male
  Weight: 46 kg

DRUGS (2)
  1. FABRAZYME [Suspect]
     Indication: FABRY'S DISEASE
     Dosage: 0.7 MG/KG, Q2W
     Route: 042
     Dates: start: 20091104
  2. FABRAZYME [Suspect]
     Dosage: UNK
     Route: 042
     Dates: start: 20040521, end: 20091020

REACTIONS (3)
  - MUSCULAR WEAKNESS [None]
  - DYSLALIA [None]
  - CEREBRAL INFARCTION [None]
